FAERS Safety Report 6496311-9 (Version None)
Quarter: 2009Q4

REPORT INFORMATION
  Report Type: 
  Country: None (occurrence: None)
  Receive Date: 20091209
  Receipt Date: 20091127
  Transmission Date: 20100525
  Serious: Yes (Hospitalization)
  Sender: FDA-Public Use
  Company Number: VISP-NO-0912S-0546

PATIENT
  Age: 65 Year
  Sex: Male

DRUGS (8)
  1. VISIPAQUE [Suspect]
     Indication: NERVOUS SYSTEM DISORDER
     Dosage: 120 ML, SINGLE DOSE, I.A.
     Route: 014
     Dates: start: 20091125, end: 20091125
  2. ESOPRAL -3 [Concomitant]
  3. ADALAT [Concomitant]
  4. ASPIRIN [Concomitant]
  5. TRIATEC [Concomitant]
  6. TORVAST [Concomitant]
  7. TACHIDOL - ADULTS [Concomitant]
  8. FLUIMUCIL [Concomitant]

REACTIONS (4)
  - CEREBELLAR ISCHAEMIA [None]
  - MOTOR DYSFUNCTION [None]
  - NAUSEA [None]
  - VOMITING [None]
